FAERS Safety Report 9124403 (Version 1)
Quarter: 2013Q1

REPORT INFORMATION
  Report Type: Spontaneous
  Country: JP (occurrence: JP)
  Receive Date: 20130116
  Receipt Date: 20130116
  Transmission Date: 20140127
  Serious: Yes (Other)
  Sender: FDA-Public Use
  Company Number: JP-JNJFOC-20130107160

PATIENT
  Age: 6 Year
  Sex: Female

DRUGS (5)
  1. ZYRTEC [Suspect]
     Route: 048
  2. ZYRTEC [Suspect]
     Indication: RHINITIS ALLERGIC
     Route: 048
     Dates: start: 20121225, end: 20121227
  3. CLARITHROMYCIN [Concomitant]
     Dosage: FOR 15 DAYS
     Route: 048
     Dates: start: 20120903
  4. BIOFERMIN R [Concomitant]
     Dosage: FOR 15 DAYS
     Route: 048
     Dates: start: 20120903
  5. CARBOCISTEINE [Concomitant]
     Dosage: FOR 15 DAYS
     Route: 048
     Dates: start: 20120903

REACTIONS (5)
  - Blood pressure decreased [Recovered/Resolved]
  - Loss of consciousness [Recovered/Resolved]
  - Fall [Recovered/Resolved]
  - Pallor [Recovered/Resolved]
  - Malaise [Recovered/Resolved]
